FAERS Safety Report 23644159 (Version 2)
Quarter: 2024Q1

REPORT INFORMATION
  Report Type: Spontaneous
  Country: US (occurrence: US)
  Receive Date: 20240318
  Receipt Date: 20240327
  Transmission Date: 20240410
  Serious: Yes (Other)
  Sender: FDA-Public Use
  Company Number: US-VERTEX PHARMACEUTICALS-2024-004485

PATIENT
  Age: 8 Year
  Sex: Male

DRUGS (2)
  1. TRIKAFTA [Suspect]
     Active Substance: ELEXACAFTOR\IVACAFTOR\TEZACAFTOR
     Indication: Cystic fibrosis
     Dosage: (50 MG ELEXA/ 25 MG TEZA/ 37.5 MG) IN AM; (75 MG IVA) IN PM
     Route: 048
     Dates: start: 202201
  2. TRIKAFTA [Suspect]
     Active Substance: ELEXACAFTOR\IVACAFTOR\TEZACAFTOR
     Dosage: (50 MG ELEXA/ 25 MG TEZA/ 37.5 MG) IN AM; (75 MG IVA) IN PM
     Route: 048
     Dates: start: 20231124

REACTIONS (3)
  - Conjunctivitis viral [Recovering/Resolving]
  - Behaviour disorder [Unknown]
  - Conjunctivitis bacterial [Recovering/Resolving]

NARRATIVE: CASE EVENT DATE: 20231226
